FAERS Safety Report 8249211-8 (Version None)
Quarter: 2012Q1

REPORT INFORMATION
  Report Type: 
  Country: None (occurrence: None)
  Receive Date: 20120328
  Receipt Date: 20120316
  Transmission Date: 20120608
  Serious: Yes (Hospitalization)
  Sender: FDA-Public Use
  Company Number: UTC-015974

PATIENT
  Age: 49 Year
  Sex: Female
  Weight: 92 kg

DRUGS (4)
  1. REVATIO [Concomitant]
  2. TYVASO [Suspect]
     Indication: PULMONARY ARTERIAL HYPERTENSION
     Dosage: 216 MCG (54 MCG, 4 IN 1 D), INHALATION
     Route: 055
     Dates: start: 20101221
  3. LETAIRIS [Concomitant]
  4. DIURETICS (DIURETICS) [Concomitant]

REACTIONS (5)
  - NAUSEA [None]
  - CHEST PAIN [None]
  - VOMITING [None]
  - DYSPNOEA [None]
  - PALPITATIONS [None]
